FAERS Safety Report 17742577 (Version 2)
Quarter: 2021Q2

REPORT INFORMATION
  Report Type: Report from Study
  Country: None (occurrence: US)
  Receive Date: 20200504
  Receipt Date: 20210406
  Transmission Date: 20210716
  Serious: Yes (Death, Other)
  Sender: FDA-Public Use
  Company Number: US-ABBVIE-18K-163-3095546-00

PATIENT
  Age: 81 Year
  Sex: Male
  Weight: 73 kg

DRUGS (10)
  1. LASIX [Concomitant]
     Active Substance: FUROSEMIDE
     Indication: OEDEMA PERIPHERAL
     Dosage: 40 MG, BID
     Route: 048
     Dates: start: 20111109
  2. IMBRUVICA [Suspect]
     Active Substance: IBRUTINIB
     Indication: CHRONIC LYMPHOCYTIC LEUKAEMIA STAGE 4
     Dosage: 420 MG, QD
     Route: 048
     Dates: start: 20170901, end: 20171011
  3. COMPAZINE [Concomitant]
     Active Substance: PROCHLORPERAZINE MALEATE
     Indication: NAUSEA
     Dosage: 10 MG, PRN
     Route: 048
     Dates: start: 20170830
  4. FLONASE [Concomitant]
     Active Substance: FLUTICASONE PROPIONATE
     Indication: RHINITIS ALLERGIC
     Dosage: 50 MCG, UNK
     Dates: start: 20170822, end: 20171226
  5. BOOST [Concomitant]
     Active Substance: DIETARY SUPPLEMENT
     Indication: DECREASED APPETITE
     Dosage: 0.04 UNK, UNK
     Route: 048
     Dates: start: 20171030
  6. MEGACE ORAL [Concomitant]
     Indication: DECREASED APPETITE
     Route: 048
     Dates: start: 20171226
  7. SPIRONOLACTONE. [Concomitant]
     Active Substance: SPIRONOLACTONE
     Indication: OEDEMA PERIPHERAL
     Dosage: 50 MG, UNK
     Route: 048
     Dates: start: 20171127
  8. SPIRONOLACTONE. [Concomitant]
     Active Substance: SPIRONOLACTONE
     Dosage: 200 MG, UNK
     Route: 048
     Dates: start: 20171214
  9. ISOSORBIDE DINITRATE. [Concomitant]
     Active Substance: ISOSORBIDE DINITRATE
     Indication: OEDEMA PERIPHERAL
     Dosage: 30 MG, UNK
     Route: 060
     Dates: start: 20111109
  10. LASIX [Concomitant]
     Active Substance: FUROSEMIDE
     Dosage: 160 MG, UNK
     Dates: start: 20171214

REACTIONS (3)
  - Oedema peripheral [Not Recovered/Not Resolved]
  - Hepatic cirrhosis [Recovered/Resolved]
  - Ascites [Not Recovered/Not Resolved]

NARRATIVE: CASE EVENT DATE: 20171011
